FAERS Safety Report 4618215-6 (Version None)
Quarter: 2005Q1

REPORT INFORMATION
  Report Type: 
  Country: None (occurrence: None)
  Receive Date: 20050324
  Receipt Date: 20050308
  Transmission Date: 20050727
  Serious: Yes (Other)
  Sender: FDA-Public Use
  Company Number: US_0502112093

PATIENT
  Age: 70 Year
  Sex: Female
  Weight: 56 kg

DRUGS (4)
  1. FORTEO [Suspect]
     Indication: OSTEOPOROSIS
     Dosage: 20 UG/ 1 DAY
     Dates: start: 20050120
  2. FURAN 74 (LEVOTHYROXINE SODIUM) [Concomitant]
  3. CALCIUM AND VITAMIN D [Concomitant]
  4. CITALOPRAM HYDROBROMIDE [Concomitant]

REACTIONS (5)
  - HEADACHE [None]
  - MUSCLE SPASMS [None]
  - MYALGIA [None]
  - PAIN IN EXTREMITY [None]
  - VISUAL ACUITY REDUCED [None]
